FAERS Safety Report 4945814-4 (Version None)
Quarter: 2006Q1

REPORT INFORMATION
  Report Type: 
  Country: None (occurrence: None)
  Receive Date: 20060117
  Receipt Date: 20050217
  Transmission Date: 20060701
  Serious: Yes (Life-Threatening, Hospitalization, Disabling)
  Sender: FDA-Public Use
  Company Number: A03200500504

PATIENT
  Age: 46 Year
  Sex: Female
  Weight: 100 kg

DRUGS (5)
  1. PLAVIX [Suspect]
     Dosage: ORAL
     Route: 048
     Dates: start: 20050128
  2. TENECTEPLASE - UNKNOWN - UNIT DOSE : UNKNOWN [Suspect]
     Dosage: UNKNOWN
     Route: 065
     Dates: start: 20050128
  3. HEPARIN [Suspect]
     Dosage: UNKNOWN
     Route: 065
     Dates: start: 20050128
  4. ASPIRIN - ACETYLSALICYLIC ACID - UNKNOWN - UNIT DOSE - UNKNOWN [Suspect]
     Dosage: ORAL
     Route: 048
     Dates: start: 20050128
  5. ABCIXIMAB - UNKNOWN - UNIT DOSE : UNKNOWN [Suspect]
     Dosage: UNKNOWN
     Route: 065
     Dates: start: 20050128

REACTIONS (4)
  - BRAIN COMPRESSION [None]
  - HAEMORRHAGE INTRACRANIAL [None]
  - HYDROCEPHALUS [None]
  - SUBARACHNOID HAEMORRHAGE [None]
